FAERS Safety Report 17410039 (Version 11)
Quarter: 2022Q2

REPORT INFORMATION
  Report Type: Spontaneous
  Country: IN (occurrence: IN)
  Receive Date: 20200212
  Receipt Date: 20220511
  Transmission Date: 20220721
  Serious: Yes (Other)
  Sender: FDA-Public Use
  Company Number: IN-PFIZER INC-2019392017

PATIENT
  Age: 38 Year
  Sex: Male

DRUGS (9)
  1. CRIZOTINIB [Suspect]
     Active Substance: CRIZOTINIB
     Indication: Non-small cell lung cancer
     Dosage: 250 MG, 2X/DAY
     Route: 048
     Dates: start: 20180118
  2. CRIZOTINIB [Suspect]
     Active Substance: CRIZOTINIB
     Dosage: 250 MG, 2X/DAY
     Route: 048
     Dates: start: 20180625
  3. CRIZOTINIB [Suspect]
     Active Substance: CRIZOTINIB
     Dosage: 250 MG, 2X/DAY
     Route: 048
     Dates: start: 20200125
  4. DOMPERIDONE\ESOMEPRAZOLE MAGNESIUM [Concomitant]
     Active Substance: DOMPERIDONE\ESOMEPRAZOLE MAGNESIUM
     Dosage: 1 DF, 1X/DAY
  5. A TO Z GOLD NS [Concomitant]
     Dosage: 15 G, 1X/DAY
  6. BIO D3 PLUS [Concomitant]
  7. ROLES-D [Concomitant]
  8. RANIDOM [Concomitant]
  9. LIV 52 [ACHILLEA MILLEFOLIUM;AYURVEDIC PREPARATION NOS;CAPPARIS SPINOS [Concomitant]
     Dosage: 2.5, TDS (0-0 X 1 WEEK)

REACTIONS (13)
  - Second primary malignancy [Recovering/Resolving]
  - Adenocarcinoma [Recovering/Resolving]
  - Pulmonary fibrosis [Unknown]
  - Pneumonitis [Unknown]
  - Hypersensitivity [Unknown]
  - Cough [Unknown]
  - Nasopharyngitis [Unknown]
  - Skin exfoliation [Unknown]
  - Allergic sinusitis [Unknown]
  - Abdominal discomfort [Not Recovered/Not Resolved]
  - Neoplasm progression [Unknown]
  - Burning sensation [Unknown]
  - Product dose omission issue [Unknown]
